FAERS Safety Report 6924893-9 (Version None)
Quarter: 2010Q3

REPORT INFORMATION
  Report Type: 
  Country: None (occurrence: None)
  Receive Date: 20100816
  Receipt Date: 20100805
  Transmission Date: 20110219
  Serious: Yes (Other)
  Sender: FDA-Public Use
  Company Number: CH-ASTRAZENECA-2010SE36902

PATIENT
  Age: 26 Year
  Sex: Female

DRUGS (7)
  1. SEROQUEL [Suspect]
     Indication: EATING DISORDER
     Route: 048
  2. CITALOPRAM [Suspect]
     Indication: EATING DISORDER
  3. DALMADORM [Suspect]
     Dates: end: 20100514
  4. LEXOTANIL [Suspect]
  5. DEMETRIN [Suspect]
     Dates: end: 20100623
  6. CANNABIS [Suspect]
     Dosage: ONCE IN A WEEK
     Dates: start: 20100301
  7. COCAINE [Suspect]
     Dosage: ONCE IN  A MONTH
     Dates: start: 20100301

REACTIONS (1)
  - DRUG EXPOSURE DURING PREGNANCY [None]
